FAERS Safety Report 15538826 (Version 2)
Quarter: 2018Q4

REPORT INFORMATION
  Report Type: Report from Study
  Country: CA (occurrence: CA)
  Receive Date: 20181022
  Receipt Date: 20181226
  Transmission Date: 20190205
  Serious: Yes (Hospitalization)
  Sender: FDA-Public Use
  Company Number: CA-GLAXOSMITHKLINE-CA2017GSK103930

PATIENT
  Sex: Male

DRUGS (8)
  1. VENTOLIN [Suspect]
     Active Substance: ALBUTEROL SULFATE
     Indication: ASTHMA
     Dosage: UNK, PRN
  2. NUCALA [Suspect]
     Active Substance: MEPOLIZUMAB
     Indication: ASTHMA
     Dosage: 100 MG, Z
     Route: 042
     Dates: start: 20170622
  3. AVAMYS [Suspect]
     Active Substance: FLUTICASONE FUROATE
     Indication: PRODUCT USED FOR UNKNOWN INDICATION
     Dosage: UNK
  4. FLUTICASONE PROPIONATE+SALMETEROL XINAFOATE [Suspect]
     Active Substance: FLUTICASONE PROPIONATE\SALMETEROL XINAFOATE
     Indication: ASTHMA
     Dosage: 1 PUFF(S), BID
     Route: 055
  5. CRESTOR [Concomitant]
     Active Substance: ROSUVASTATIN CALCIUM
     Indication: ASTHMA
     Dosage: UNK
  6. DEXILANT [Concomitant]
     Active Substance: DEXLANSOPRAZOLE
     Indication: ASTHMA
     Dosage: UNK
  7. SINGULAIR [Suspect]
     Active Substance: MONTELUKAST SODIUM
     Indication: ASTHMA
     Dosage: UNK
  8. NUCALA [Suspect]
     Active Substance: MEPOLIZUMAB
     Dosage: 100 MG, Z(MONTHLY)
     Route: 042

REACTIONS (14)
  - Pruritus [Unknown]
  - Oedema [Unknown]
  - Nasopharyngeal reflux [Unknown]
  - Eosinophil count increased [Unknown]
  - Asthma [Unknown]
  - Small airways disease [Unknown]
  - Infection parasitic [Unknown]
  - Upper-airway cough syndrome [Unknown]
  - Dyspnoea exertional [Unknown]
  - Erythema [Unknown]
  - Rash maculo-papular [Unknown]
  - Obstructive airways disorder [Unknown]
  - Emphysema [Unknown]
  - Drug ineffective [Unknown]
